FAERS Safety Report 4945170-1 (Version None)
Quarter: 2006Q1

REPORT INFORMATION
  Report Type: 
  Country: None (occurrence: None)
  Receive Date: 20060117
  Receipt Date: 20050804
  Transmission Date: 20060701
  Serious: Yes (Hospitalization)
  Sender: FDA-Public Use
  Company Number: A03200502371

PATIENT
  Age: 71 Year
  Sex: Female

DRUGS (14)
  1. PLAVIX [Suspect]
     Dosage: 75 MG QD - ORAL
     Route: 048
     Dates: end: 20050701
  2. LOVASTATIN [Concomitant]
  3. LISINOPRIL [Concomitant]
  4. OMEPRAZOLE [Concomitant]
  5. TIOTROPIUM BROMIDE [Concomitant]
  6. SALMETEROL XINAFOATE [Concomitant]
  7. FLUTICASONE PROPIONATE [Concomitant]
  8. ALBUTEROL [Concomitant]
  9. MONTELUKAST SODIUM [Concomitant]
  10. FLUTICASONE PROPIONATE [Concomitant]
  11. GLYCERYL TRINITRATE [Concomitant]
  12. VERAPAMIL HYDROCHLORIDE [Concomitant]
  13. FEXOFENADINE HYDROCHLORIDE [Concomitant]
  14. TORSEMIDE [Concomitant]

REACTIONS (4)
  - ANAEMIA [None]
  - ASTHMA [None]
  - BLOOD PRESSURE DECREASED [None]
  - HAEMATURIA [None]
